FAERS Safety Report 21274443 (Version 1)
Quarter: 2022Q3

REPORT INFORMATION
  Report Type: Report from Study
  Country: GB (occurrence: GB)
  Receive Date: 20220831
  Receipt Date: 20220831
  Transmission Date: 20221027
  Serious: Yes (Other)
  Sender: FDA-Public Use
  Company Number: GB-KYOWAKIRIN-2022BKK013626

PATIENT

DRUGS (2)
  1. CRYSVITA [Suspect]
     Active Substance: BUROSUMAB-TWZA
     Indication: Product used for unknown indication
     Dosage: 80 MG (1 STRENGTH 20 MG/ML AND 2  30 MG/ ML COMBINED TO ACHIEVE 80 MG)
     Route: 065
  2. CRYSVITA [Suspect]
     Active Substance: BUROSUMAB-TWZA
     Indication: Product used for unknown indication
     Dosage: 80 MG (1 STRENGTH 20 MG/ML AND 2  30 MG/ ML COMBINED TO ACHIEVE 80 MG)
     Route: 065

REACTIONS (2)
  - Intentional self-injury [Unknown]
  - Mental disorder [Unknown]
